FAERS Safety Report 21040602 (Version 3)
Quarter: 2022Q3

REPORT INFORMATION
  Report Type: Report from Study
  Country: AR (occurrence: AR)
  Receive Date: 20220704
  Receipt Date: 20220801
  Transmission Date: 20221027
  Serious: Yes (Hospitalization, Other)
  Sender: FDA-Public Use
  Company Number: AR-SA-SAC20220701002078

PATIENT
  Age: 53 Year
  Sex: Male

DRUGS (2)
  1. ALEMTUZUMAB [Suspect]
     Active Substance: ALEMTUZUMAB
     Indication: Multiple sclerosis
     Dosage: 12 MG, Q5D
     Route: 042
     Dates: start: 20190121, end: 20200108
  2. ALEMTUZUMAB [Suspect]
     Active Substance: ALEMTUZUMAB
     Dosage: 12 MG, Q5D
     Route: 042
     Dates: start: 20200104

REACTIONS (3)
  - Large intestinal haemorrhage [Unknown]
  - Colon cancer [Unknown]
  - Medical induction of coma [Unknown]

NARRATIVE: CASE EVENT DATE: 20220621
